FAERS Safety Report 6139326-2 (Version None)
Quarter: 2009Q2

REPORT INFORMATION
  Report Type: 
  Country: None (occurrence: None)
  Receive Date: 20090401
  Receipt Date: 20090325
  Transmission Date: 20091009
  Serious: Yes (Hospitalization)
  Sender: FDA-Public Use
  Company Number: PHHY2009FR11427

PATIENT
  Age: 96 Year
  Sex: Female

DRUGS (6)
  1. EXELON [Suspect]
     Dosage: 4.5 MG, QD
     Route: 048
  2. EXELON [Suspect]
     Dosage: 6 MG, QD
     Route: 048
  3. EXELON [Suspect]
     Dosage: 9 MG, QD
     Route: 048
     Dates: end: 20090121
  4. EXELON [Suspect]
     Dosage: 12 MG, QD
     Route: 048
     Dates: end: 20090121
  5. TRIATEC [Concomitant]
     Dosage: 1.25 MG, QD
     Route: 048
  6. KARDEGIC [Concomitant]
     Dosage: 75 MG, QD

REACTIONS (3)
  - HYPOTHERMIA [None]
  - INCORRECT DOSE ADMINISTERED [None]
  - OVERDOSE [None]
